FAERS Safety Report 5815684-0 (Version None)
Quarter: 2008Q3

REPORT INFORMATION
  Report Type: 
  Country: None (occurrence: None)
  Receive Date: 20080716
  Receipt Date: 20080707
  Transmission Date: 20090109
  Serious: Yes (Other)
  Sender: FDA-Public Use
  Company Number: 2008017761

PATIENT
  Sex: Male
  Weight: 76.2043 kg

DRUGS (1)
  1. LISTERINE WHITENING QUICK DISSOLVING STRIPS (NO ACTIVE INGREDIENT) [Suspect]
     Indication: DENTAL CARE
     Dosage: 4 STRIPS 2X PER DAY, ORAL
     Route: 048
     Dates: start: 20080703, end: 20080706

REACTIONS (2)
  - APPLICATION SITE BURN [None]
  - LIP PAIN [None]
